FAERS Safety Report 9156685 (Version 2)
Quarter: 2013Q1

REPORT INFORMATION
  Report Type: Spontaneous
  Country: US (occurrence: None)
  Receive Date: 20130211
  Receipt Date: 20130221
  Transmission Date: 20140127
  Serious: Yes (Hospitalization)
  Sender: FDA-Public Use
  Company Number: 2013SUN00054

PATIENT
  Age: 63 Year
  Sex: Female
  Weight: 60.9 kg

DRUGS (8)
  1. METFORMIN [Suspect]
     Indication: TYPE 2 DIABETES MELLITUS
     Route: 048
     Dates: start: 20091007, end: 20100606
  2. ALOGLIPTIN [Suspect]
     Indication: TYPE 2 DIABETES MELLITUS
     Route: 048
     Dates: start: 20100106, end: 20100606
  3. ALTACE (RAMIPRIL) [Concomitant]
  4. ATENOLOL (ATENOLOL) [Concomitant]
  5. ACTONEL (RISEDRONATE SODIUM) [Concomitant]
  6. LIPITOR (ATORVASTATIN CALCIUM) [Concomitant]
  7. TRIAMTERENE HYDROCHLOROTHIAZIDE (TRIAMTERENE HYDROCHLOROTHIAZIDE) [Concomitant]
  8. ASPIRIN (ACETYLSALICYLIC ACID) [Concomitant]

REACTIONS (2)
  - Coronary artery disease [None]
  - Chronic obstructive pulmonary disease [None]
